FAERS Safety Report 6082427-8 (Version None)
Quarter: 2009Q1

REPORT INFORMATION
  Report Type: 
  Country: None (occurrence: None)
  Receive Date: 20090218
  Receipt Date: 20090204
  Transmission Date: 20090719
  Serious: Yes (Congenital Anomaly)
  Sender: FDA-Public Use
  Company Number: TW-MERCK-0812TWN00004B1

PATIENT
  Sex: Male

DRUGS (1)
  1. PROSCAR [Suspect]
     Route: 064
     Dates: start: 20060101, end: 20081201

REACTIONS (2)
  - CYTOGENETIC ABNORMALITY [None]
  - LIMB DEFORMITY [None]
